FAERS Safety Report 22298000 (Version 1)
Quarter: 2023Q2

REPORT INFORMATION
  Report Type: Spontaneous
  Country: US (occurrence: US)
  Receive Date: 20230509
  Receipt Date: 20230509
  Transmission Date: 20230722
  Serious: Yes (Life-Threatening, Hospitalization)
  Sender: FDA-Public Use
  Company Number: US-drreddys-LIT/USA/23/0164687

PATIENT
  Age: 44 Year
  Sex: Female

DRUGS (1)
  1. HYDROXYZINE HYDROCHLORIDE [Suspect]
     Active Substance: HYDROXYZINE HYDROCHLORIDE
     Indication: Product used for unknown indication

REACTIONS (6)
  - Pulmonary oedema [Unknown]
  - Hypoxia [Unknown]
  - Eosinophilic myocarditis [Recovering/Resolving]
  - Cardiogenic shock [Unknown]
  - Dyspnoea [Unknown]
  - Rash pruritic [Unknown]
